FAERS Safety Report 10008001 (Version 1)
Quarter: 2014Q1

REPORT INFORMATION
  Report Type: Spontaneous
  Country: DE (occurrence: DE)
  Receive Date: 20140313
  Receipt Date: 20140313
  Transmission Date: 20141002
  Serious: Yes (Hospitalization, Other)
  Sender: FDA-Public Use
  Company Number: GXKR2014DE001225

PATIENT
  Age: 34 Year
  Sex: Male

DRUGS (1)
  1. AMOXI 1A PHARMA [Suspect]
     Dosage: UNK MG, UNK
     Route: 048

REACTIONS (6)
  - Swelling face [Unknown]
  - Oral candidiasis [Not Recovered/Not Resolved]
  - Glossodynia [Not Recovered/Not Resolved]
  - Pharyngitis [Not Recovered/Not Resolved]
  - Dry mouth [Not Recovered/Not Resolved]
  - Ageusia [Not Recovered/Not Resolved]
